FAERS Safety Report 4360238-9 (Version None)
Quarter: 2004Q2

REPORT INFORMATION
  Report Type: 
  Country: None (occurrence: None)
  Receive Date: 20040518
  Receipt Date: 20040518
  Transmission Date: 20050107
  Serious: Yes (Hospitalization)
  Sender: FDA-Public Use
  Company Number: None

PATIENT
  Sex: Female

DRUGS (15)
  1. DIGOXIN [Suspect]
     Indication: CARDIAC FAILURE CONGESTIVE
     Dosage: 0.125 MG PO QD
     Route: 048
  2. TEMAZEPAM [Concomitant]
  3. APAP TAB [Concomitant]
  4. MAALOX [Concomitant]
  5. FUROSEMIDE [Concomitant]
  6. METOLAZONE [Concomitant]
  7. CARVEDILOL [Concomitant]
  8. PERGOLINE [Concomitant]
  9. ENALAPRIL MALEATE [Concomitant]
  10. AMIODARONE HCL [Concomitant]
  11. ALLOPURINOL [Concomitant]
  12. CEFAZOLIN [Concomitant]
  13. WARFARIN SODIUM [Concomitant]
  14. LEVOTHYROXINE SODIUM [Concomitant]
  15. CEPHALEXIN [Concomitant]

REACTIONS (6)
  - AMNESIA [None]
  - ATAXIA [None]
  - DRUG LEVEL ABOVE THERAPEUTIC [None]
  - DYSPHAGIA [None]
  - GAIT DISTURBANCE [None]
  - OEDEMA PERIPHERAL [None]
